FAERS Safety Report 15216969 (Version 3)
Quarter: 2018Q3

REPORT INFORMATION
  Report Type: Spontaneous
  Country: GB (occurrence: GB)
  Receive Date: 20180730
  Receipt Date: 20180905
  Transmission Date: 20181010
  Serious: Yes (Other)
  Sender: FDA-Public Use
  Company Number: GB-NOVOPROD-612859

PATIENT
  Age: 68 Year
  Sex: Female

DRUGS (1)
  1. INSULATARD NPH HUMAN [Suspect]
     Active Substance: INSULIN HUMAN
     Indication: TYPE 2 DIABETES MELLITUS
     Dosage: UNK
     Route: 065

REACTIONS (5)
  - Device failure [Unknown]
  - Incorrect dose administered by device [Unknown]
  - Loss of consciousness [Unknown]
  - Device issue [Unknown]
  - Fall [Unknown]
